FAERS Safety Report 8563197-8 (Version None)
Quarter: 2012Q3

REPORT INFORMATION
  Report Type: 
  Country: None (occurrence: None)
  Receive Date: 20120802
  Receipt Date: 20120725
  Transmission Date: 20120928
  Serious: No
  Sender: FDA-Public Use
  Company Number: US-AMGEN-USASP2012029014

PATIENT
  Age: 63 Year
  Sex: Female

DRUGS (1)
  1. ENBREL [Suspect]
     Indication: RHEUMATOID ARTHRITIS
     Dosage: 50 MG, 2 TIMES/WK
     Route: 058
     Dates: start: 20020101, end: 20120402

REACTIONS (6)
  - SINUS CONGESTION [None]
  - NODULE [None]
  - ARTHRALGIA [None]
  - FATIGUE [None]
  - HERPES ZOSTER [None]
  - PAIN IN EXTREMITY [None]
